FAERS Safety Report 8558157-7 (Version None)
Quarter: 2012Q3

REPORT INFORMATION
  Report Type: 
  Country: None (occurrence: None)
  Receive Date: 20120801
  Receipt Date: 20120718
  Transmission Date: 20120928
  Serious: No
  Sender: FDA-Public Use
  Company Number: US-ASTRAZENECA-2011SE40843

PATIENT
  Age: 52 Year
  Sex: Female

DRUGS (21)
  1. METFORMIN HYDROCHLORIDE [Concomitant]
  2. TRENTAL [Concomitant]
  3. IMDUR [Concomitant]
  4. NITROSTAT [Concomitant]
  5. SIMVASTATIN [Concomitant]
  6. SYMBICORT [Concomitant]
  7. SINGULAIR [Concomitant]
  8. ZESTRIL [Concomitant]
  9. NITROGLYCERIN [Concomitant]
  10. SPIRIVA [Concomitant]
  11. OMEPRAZOLE [Suspect]
     Route: 048
  12. ROBAXIN [Concomitant]
  13. IBUPROFEN [Concomitant]
  14. XOPENEX [Concomitant]
  15. LEVOTHYROXINE SODIUM [Concomitant]
  16. PHENAZOPYRIDINE HCL TAB [Concomitant]
  17. NOVOLIN 70/30 [Concomitant]
  18. ATIVAN [Concomitant]
  19. NEXIUM [Suspect]
     Route: 048
  20. REGLAN [Concomitant]
  21. LEUSIN [Concomitant]

REACTIONS (3)
  - DRUG DOSE OMISSION [None]
  - DRUG INEFFECTIVE [None]
  - IMPAIRED WORK ABILITY [None]
